FAERS Safety Report 7208630-9 (Version None)
Quarter: 2010Q4

REPORT INFORMATION
  Report Type: 
  Country: None (occurrence: None)
  Receive Date: 20101222
  Receipt Date: 20101214
  Transmission Date: 20110411
  Serious: Yes (Hospitalization)
  Sender: FDA-Public Use
  Company Number: 652048

PATIENT
  Age: 78 Year
  Sex: Female
  Weight: 86.1 kg

DRUGS (3)
  1. METHOTRRXATE INJECTION (METHOTREXATE) [Suspect]
     Indication: PRODUCT USED FOR UNKNOWN INDICATION
  2. (INVESTIGATIONAL DRUG) [Suspect]
     Indication: RHEUMATOID ARTHRITIS
     Dosage: 5 MG, 2X/DAY ORAL
     Route: 048
     Dates: start: 20081025, end: 20100625
  3. PREDNISONE [Suspect]
     Indication: RHEUMATOID ARTHRITIS
     Dosage: 10 MG, ONCE A DAY
     Dates: start: 20050101

REACTIONS (7)
  - ATRIAL FLUTTER [None]
  - BACK PAIN [None]
  - FALL [None]
  - PNEUMONIA PNEUMOCOCCAL [None]
  - PULMONARY FIBROSIS [None]
  - SPINAL FRACTURE [None]
  - SYNCOPE [None]
